FAERS Safety Report 5981707-1 (Version None)
Quarter: 2008Q4

REPORT INFORMATION
  Report Type: 
  Country: None (occurrence: None)
  Receive Date: 20081205
  Receipt Date: 20081127
  Transmission Date: 20090506
  Serious: Yes (Other)
  Sender: FDA-Public Use
  Company Number: ES-ELI_LILLY_AND_COMPANY-ES200811006317

PATIENT
  Age: 46 Year
  Sex: Male

DRUGS (6)
  1. ZYPREXA [Suspect]
     Dosage: 10 MG, UNK
     Route: 048
     Dates: start: 20070101, end: 20081008
  2. IBUPROFEN TABLETS [Interacting]
     Dosage: 1200 MG, DAILY (1/D)
     Route: 048
     Dates: start: 20080918, end: 20080920
  3. DEPAKENE [Interacting]
     Dosage: 6 ML, UNK
     Route: 048
     Dates: start: 20070101, end: 20081001
  4. DOLQUINE [Interacting]
     Dosage: 400 MG, UNK
     Route: 048
     Dates: start: 20070101, end: 20081001
  5. MODECATE [Interacting]
     Dosage: 1 D/F, UNK
     Route: 030
     Dates: start: 20070101, end: 20081001
  6. ZITHROMAX [Interacting]
     Dosage: 500 MG, UNK
     Route: 048
     Dates: start: 20080918, end: 20080920

REACTIONS (2)
  - DRUG INTERACTION [None]
  - THROMBOCYTOPENIA [None]
